FAERS Safety Report 16857588 (Version 1)
Quarter: 2019Q3

REPORT INFORMATION
  Report Type: Report from Study
  Country: None (occurrence: US)
  Receive Date: 20190926
  Receipt Date: 20190926
  Transmission Date: 20191005
  Serious: Yes (Other)
  Sender: FDA-Public Use
  Company Number: US-ABBVIE-19K-163-2934585-00

PATIENT
  Sex: Female

DRUGS (3)
  1. HUMIRA [Suspect]
     Active Substance: ADALIMUMAB
     Route: 058
     Dates: start: 2019
  2. HUMIRA [Suspect]
     Active Substance: ADALIMUMAB
     Route: 058
     Dates: end: 201811
  3. HUMIRA [Suspect]
     Active Substance: ADALIMUMAB
     Indication: ANKYLOSING SPONDYLITIS
     Route: 058
     Dates: start: 201703

REACTIONS (9)
  - Ankylosing spondylitis [Recovering/Resolving]
  - Abdominal discomfort [Not Recovered/Not Resolved]
  - Uterine disorder [Recovered/Resolved]
  - Therapeutic response shortened [Unknown]
  - Gallbladder hypofunction [Recovered/Resolved]
  - Gastrointestinal pain [Not Recovered/Not Resolved]
  - Constipation [Unknown]
  - Vaginal haemorrhage [Recovered/Resolved]
  - Pain [Recovering/Resolving]

NARRATIVE: CASE EVENT DATE: 2019
